FAERS Safety Report 16545003 (Version 1)
Quarter: 2019Q3

REPORT INFORMATION
  Report Type: Spontaneous
  Country: GB (occurrence: GB)
  Receive Date: 20190709
  Receipt Date: 20190709
  Transmission Date: 20191004
  Serious: Yes (Hospitalization)
  Sender: FDA-Public Use
  Company Number: GB-MYLANLABS-2019M1062305

PATIENT
  Age: 85 Year
  Sex: Female
  Weight: 74 kg

DRUGS (12)
  1. SALBUTAMOL [Concomitant]
     Active Substance: ALBUTEROL
  2. BRALTUS [Concomitant]
     Active Substance: TIOTROPIUM BROMIDE
  3. LATANOPROST. [Concomitant]
     Active Substance: LATANOPROST
  4. MEROPENEM. [Concomitant]
     Active Substance: MEROPENEM
     Dosage: 3 GRAM, QD
     Route: 042
  5. VERAPAMIL [Concomitant]
     Active Substance: VERAPAMIL HYDROCHLORIDE
  6. PRAVASTATIN. [Concomitant]
     Active Substance: PRAVASTATIN
  7. LEVOTHYROXINE. [Concomitant]
     Active Substance: LEVOTHYROXINE
  8. LEVOFLOXACIN. [Suspect]
     Active Substance: LEVOFLOXACIN
     Indication: SEPSIS
     Dosage: 500 MILLIGRAM, QD
     Route: 048
     Dates: start: 20190109, end: 20190115
  9. XARELTO [Concomitant]
     Active Substance: RIVAROXABAN
  10. SIRDUPLA [Concomitant]
     Active Substance: FLUTICASONE PROPIONATE\SALMETEROL XINAFOATE
  11. AMINOPHYLLINE. [Interacting]
     Active Substance: AMINOPHYLLINE
     Indication: PRODUCT USED FOR UNKNOWN INDICATION
     Dosage: UNK
  12. ALLOPURINOL. [Concomitant]
     Active Substance: ALLOPURINOL
     Dosage: UNK

REACTIONS (6)
  - Potentiating drug interaction [Unknown]
  - Vomiting [Unknown]
  - Toxicity to various agents [Unknown]
  - Malaise [Not Recovered/Not Resolved]
  - Tremor [Recovering/Resolving]
  - Feeling abnormal [Not Recovered/Not Resolved]

NARRATIVE: CASE EVENT DATE: 20190115
